FAERS Safety Report 10445866 (Version 6)
Quarter: 2015Q1

REPORT INFORMATION
  Report Type: Spontaneous
  Country: US (occurrence: US)
  Receive Date: 20140910
  Receipt Date: 20150317
  Transmission Date: 20150720
  Serious: Yes (Hospitalization, Other)
  Sender: FDA-Public Use
  Company Number: US-MERCK-1409USA004499

PATIENT
  Sex: Female
  Weight: 99.77 kg

DRUGS (7)
  1. JANUVIA [Suspect]
     Active Substance: SITAGLIPTIN PHOSPHATE
     Indication: TYPE 2 DIABETES MELLITUS
     Dosage: 100 MG, QD
     Route: 048
     Dates: start: 20060731, end: 20070330
  2. JANUVIA [Suspect]
     Active Substance: SITAGLIPTIN PHOSPHATE
     Dosage: 50 MG, UNK
     Route: 048
     Dates: start: 20120213, end: 20120518
  3. BYETTA [Suspect]
     Active Substance: EXENATIDE
     Indication: TYPE 2 DIABETES MELLITUS
     Dosage: 10MCG/0.04ML, BID
     Route: 058
     Dates: start: 20060731, end: 20070330
  4. BYETTA [Suspect]
     Active Substance: EXENATIDE
     Dosage: 10MCG/0.04ML, BID
     Route: 058
     Dates: start: 20110329, end: 20120203
  5. JANUVIA [Suspect]
     Active Substance: SITAGLIPTIN PHOSPHATE
     Dosage: 100 MG, QD
     Route: 048
     Dates: start: 20070629, end: 20120203
  6. JANUVIA [Suspect]
     Active Substance: SITAGLIPTIN PHOSPHATE
     Dosage: 25 MG, UNK
     Route: 048
     Dates: start: 20120626, end: 20120831
  7. SYNTHROID [Concomitant]
     Active Substance: LEVOTHYROXINE SODIUM
     Dosage: UNK, QD
     Route: 048
     Dates: start: 1999

REACTIONS (35)
  - Parathyroid gland operation [Unknown]
  - Anaemia [Unknown]
  - Parathyroid tumour benign [Unknown]
  - Cerebrovascular accident [Unknown]
  - Oedema peripheral [Unknown]
  - Goitre [Unknown]
  - Parathyroidectomy [Unknown]
  - Appetite disorder [Unknown]
  - Thyroiditis [Unknown]
  - Back pain [Not Recovered/Not Resolved]
  - Hypotension [Unknown]
  - Viral infection [Unknown]
  - Osteoarthritis [Unknown]
  - Gastrooesophageal reflux disease [Unknown]
  - Thyroidectomy [Recovering/Resolving]
  - Depression [Unknown]
  - Papillary thyroid cancer [Unknown]
  - Parathyroid tumour benign [Unknown]
  - Mass excision [Unknown]
  - Hyperparathyroidism [Unknown]
  - Atelectasis [Recovered/Resolved]
  - Sleep apnoea syndrome [Unknown]
  - Hiatus hernia [Unknown]
  - Stress urinary incontinence [Unknown]
  - Micturition urgency [Unknown]
  - Temperature intolerance [Unknown]
  - Bunion operation [Unknown]
  - Pollakiuria [Unknown]
  - Hair disorder [Unknown]
  - Granuloma [Unknown]
  - Electrolyte imbalance [Unknown]
  - Asthenia [Unknown]
  - Dyspnoea exertional [Unknown]
  - Hyperparathyroidism primary [Unknown]
  - Pain in extremity [Unknown]

NARRATIVE: CASE EVENT DATE: 200903
